FAERS Safety Report 18968925 (Version 1)
Quarter: 2021Q1

REPORT INFORMATION
  Report Type: Spontaneous
  Country: US (occurrence: US)
  Receive Date: 20210304
  Receipt Date: 20210304
  Transmission Date: 20210420
  Serious: Yes (Death)
  Sender: FDA-Public Use
  Company Number: None

PATIENT
  Age: 68 Year
  Sex: Male
  Weight: 123.97 kg

DRUGS (19)
  1. ALBUTEROL. [Concomitant]
     Active Substance: ALBUTEROL
  2. LIDOCAINE. [Concomitant]
     Active Substance: LIDOCAINE
  3. SEREVENT DISKUS [Concomitant]
     Active Substance: SALMETEROL XINAFOATE
  4. VITAMIN E [Concomitant]
     Active Substance: .ALPHA.-TOCOPHEROL
  5. PREDNISONE. [Concomitant]
     Active Substance: PREDNISONE
  6. TRAMADOL. [Concomitant]
     Active Substance: TRAMADOL
  7. LORATADINE. [Concomitant]
     Active Substance: LORATADINE
  8. LORAZEPAM. [Concomitant]
     Active Substance: LORAZEPAM
  9. LOSARTAN. [Concomitant]
     Active Substance: LOSARTAN
  10. OMEGA 3 [Concomitant]
     Active Substance: OMEGA-3 FATTY ACIDS
  11. ASPIRIN. [Concomitant]
     Active Substance: ASPIRIN
  12. CHLORTHALIDONE. [Concomitant]
     Active Substance: CHLORTHALIDONE
  13. MVI [Concomitant]
     Active Substance: VITAMINS
  14. TYLENOL [Concomitant]
     Active Substance: ACETAMINOPHEN
  15. ABIRATERONE. [Suspect]
     Active Substance: ABIRATERONE ACETATE
     Indication: PROSTATE CANCER
     Route: 048
     Dates: start: 20201221
  16. ACYCLOVIR. [Concomitant]
     Active Substance: ACYCLOVIR
  17. CELECOXIB. [Concomitant]
     Active Substance: CELECOXIB
  18. GLUCOSAMINE CHONDROITIN [Concomitant]
     Active Substance: CHONDROITIN SULFATE (BOVINE)\GLUCOSAMINE HYDROCHLORIDE
  19. NYSTATIN. [Concomitant]
     Active Substance: NYSTATIN

REACTIONS (1)
  - Death [None]

NARRATIVE: CASE EVENT DATE: 20210304
